FAERS Safety Report 18506825 (Version 1)
Quarter: 2020Q4

REPORT INFORMATION
  Report Type: Spontaneous
  Country: US (occurrence: US)
  Receive Date: 20201114
  Receipt Date: 20201114
  Transmission Date: 20210114
  Serious: No
  Sender: FDA-Public Use
  Company Number: None

PATIENT
  Sex: Female
  Weight: 113.4 kg

DRUGS (14)
  1. PROVIGIL [Suspect]
     Active Substance: MODAFINIL
  2. NEXPLANON [Concomitant]
     Active Substance: ETONOGESTREL
  3. BENADRYL [Concomitant]
     Active Substance: DIPHENHYDRAMINE HYDROCHLORIDE
  4. PROAIR HFA [Concomitant]
     Active Substance: ALBUTEROL SULFATE
  5. FOCALIN XR [Concomitant]
     Active Substance: DEXMETHYLPHENIDATE HYDROCHLORIDE
  6. TYLENOL [Concomitant]
     Active Substance: ACETAMINOPHEN
  7. PROTEIN SHAKES [Concomitant]
  8. DRISDOL [Concomitant]
     Active Substance: ERGOCALCIFEROL
  9. TUMS [Concomitant]
     Active Substance: CALCIUM CARBONATE
  10. ALEVE [Concomitant]
     Active Substance: NAPROXEN SODIUM
  11. GILENYA [Suspect]
     Active Substance: FINGOLIMOD HYDROCHLORIDE
     Indication: MULTIPLE SCLEROSIS RELAPSE
     Dosage: ?          QUANTITY:1 CAPSULE(S);?
     Route: 048
  12. RITALIN [Suspect]
     Active Substance: METHYLPHENIDATE HYDROCHLORIDE
  13. GILENYA [Concomitant]
     Active Substance: FINGOLIMOD HYDROCHLORIDE
  14. NORVASC [Concomitant]
     Active Substance: AMLODIPINE BESYLATE

REACTIONS (12)
  - Fatigue [None]
  - Depression [None]
  - Night sweats [None]
  - Attention deficit hyperactivity disorder [None]
  - Rash [None]
  - Blood cholesterol increased [None]
  - Chest pain [None]
  - Pain in extremity [None]
  - Hypertension [None]
  - Sleep disorder [None]
  - Vitamin D deficiency [None]
  - Dyspnoea [None]
